FAERS Safety Report 6197222-9 (Version None)
Quarter: 2009Q2

REPORT INFORMATION
  Report Type: 
  Country: None (occurrence: None)
  Receive Date: 20090521
  Receipt Date: 20080324
  Transmission Date: 20091009
  Serious: Yes (Other)
  Sender: FDA-Public Use
  Company Number: US-ASTRAZENECA-2008UW01201

PATIENT
  Age: 12886 Day
  Sex: Female
  Weight: 117.9 kg

DRUGS (28)
  1. SEROQUEL [Suspect]
     Indication: ANXIETY
     Dosage: 100 MG TO 200 MG
     Route: 048
     Dates: start: 20040401, end: 20071101
  2. SEROQUEL [Suspect]
     Indication: DEPRESSION
     Dosage: 100 MG TO 200 MG
     Route: 048
     Dates: start: 20040401, end: 20071101
  3. SEROQUEL [Suspect]
     Indication: BIPOLAR DISORDER
     Dosage: 100 MG TO 200 MG
     Route: 048
     Dates: start: 20040401, end: 20071101
  4. SEROQUEL [Suspect]
     Dosage: 200-400MG
     Route: 048
     Dates: start: 20050329
  5. SEROQUEL [Suspect]
     Dosage: 200-400MG
     Route: 048
     Dates: start: 20050329
  6. SEROQUEL [Suspect]
     Dosage: 200-400MG
     Route: 048
     Dates: start: 20050329
  7. LORAZEPAM [Concomitant]
     Route: 065
  8. ALBUTEROL [Concomitant]
     Dosage: TWICE A DAY
     Route: 065
  9. ABILIFY [Concomitant]
     Route: 065
  10. GABAPENTIN [Concomitant]
     Route: 065
  11. WELLBUTRIN [Concomitant]
     Route: 065
  12. SKELAXIN [Concomitant]
     Route: 065
  13. PREMARIN [Concomitant]
     Route: 065
  14. REQUIP [Concomitant]
     Dosage: 0.5-1MG
     Route: 065
  15. METFORMIN HCL [Concomitant]
     Route: 065
  16. AMLODIPINE MALEATE/ BENAZEPRIL HYDROCHLORIDE [Concomitant]
     Dosage: 5-10MG
     Route: 065
  17. NEXIUM [Concomitant]
     Dosage: 40-80MG
     Route: 048
  18. ACCUNEB [Concomitant]
     Route: 065
  19. MIRAPEX [Concomitant]
     Route: 065
  20. ZELNORM [Concomitant]
     Route: 048
  21. ADVAIR DISKUS 100/50 [Concomitant]
     Dosage: ONE PUFF BID
     Route: 065
  22. GRIFULVIN [Concomitant]
     Route: 065
  23. LUNESTA [Concomitant]
     Route: 065
  24. CYMBALTA [Concomitant]
     Route: 065
  25. HYOSCYAMINE [Concomitant]
     Route: 065
  26. OXYCODONE HCL [Concomitant]
     Route: 065
  27. PERCOCET [Concomitant]
     Dosage: 5/325MG
     Route: 048
  28. LEXAPRO [Concomitant]
     Route: 048

REACTIONS (20)
  - ABDOMINAL PAIN [None]
  - ABNORMAL WEIGHT GAIN [None]
  - CARDIOMEGALY [None]
  - CHEST PAIN [None]
  - CONTUSION [None]
  - DIABETES MELLITUS [None]
  - DYSPHAGIA [None]
  - EMPHYSEMA [None]
  - GLUCOSE TOLERANCE IMPAIRED [None]
  - HYPERGLYCAEMIA [None]
  - HYPERTONIC BLADDER [None]
  - INTERVERTEBRAL DISC PROTRUSION [None]
  - KELOID SCAR [None]
  - LYMPHADENITIS [None]
  - OBESITY [None]
  - ONYCHOMYCOSIS [None]
  - PSEUDODEMENTIA [None]
  - RESTLESS LEGS SYNDROME [None]
  - SLEEP APNOEA SYNDROME [None]
  - UPPER AIRWAY RESISTANCE SYNDROME [None]
